FAERS Safety Report 7198908-X (Version None)
Quarter: 2010Q4

REPORT INFORMATION
  Report Type: 
  Country: None (occurrence: None)
  Receive Date: 20101227
  Receipt Date: 20101214
  Transmission Date: 20110411
  Serious: Yes (Other)
  Sender: FDA-Public Use
  Company Number: DE-GENENTECH-311563

PATIENT
  Age: 59 Year
  Sex: Female
  Weight: 75 kg

DRUGS (8)
  1. RITUXIMAB [Suspect]
     Indication: RHEUMATOID ARTHRITIS
     Dosage: 1000 MG, UNK
     Route: 042
     Dates: start: 20101006
  2. METHYLPREDNISOLONE ACETATE [Suspect]
     Indication: RHEUMATOID ARTHRITIS
     Dosage: 125 MG, UNK
     Route: 042
     Dates: start: 20101006, end: 20101006
  3. METHYLPREDNISOLONE ACETATE [Suspect]
     Dosage: 250 MG, UNK
     Route: 042
     Dates: start: 20101019, end: 20101019
  4. METHYLPREDNISOLONE ACETATE [Suspect]
     Dosage: 500 MG, UNK
     Route: 042
     Dates: start: 20101022
  5. FENISTIL (DIMETINDENE) [Concomitant]
     Indication: PREMEDICATION
     Dosage: 4 MG, UNK
     Dates: start: 20101006
  6. PANTOZOL [Concomitant]
     Indication: PRODUCT USED FOR UNKNOWN INDICATION
     Dosage: 20 MG, UNK
  7. NOVALGIN [Concomitant]
     Indication: PRODUCT USED FOR UNKNOWN INDICATION
     Dosage: 40 GTT, UNK
  8. TILIDIN [Concomitant]
     Indication: PRODUCT USED FOR UNKNOWN INDICATION
     Dosage: 100 MG, UNK

REACTIONS (5)
  - CHEST DISCOMFORT [None]
  - DYSPNOEA EXERTIONAL [None]
  - FIBRIN D DIMER INCREASED [None]
  - PAIN IN EXTREMITY [None]
  - PLEURAL EFFUSION [None]
